FAERS Safety Report 8995117 (Version 1)
Quarter: 2012Q4

REPORT INFORMATION
  Report Type: Spontaneous
  Country: CN (occurrence: None)
  Receive Date: 20121221
  Receipt Date: 20121221
  Transmission Date: 20130627
  Serious: Yes (Disabling)
  Sender: FDA-Public Use
  Company Number: FK201203947

PATIENT
  Age: 77 Year
  Sex: Male

DRUGS (2)
  1. HALDOL [Suspect]
     Indication: MEIGE^S SYNDROME
     Dates: start: 2001, end: 2010
  2. TRIHEXYPHENIDYL (TRIHEXYPHENIDYL) [Concomitant]

REACTIONS (3)
  - Dementia with Lewy bodies [None]
  - Urinary tract infection [None]
  - Hallucination, visual [None]
